FAERS Safety Report 9167548 (Version 3)
Quarter: 2013Q2

REPORT INFORMATION
  Report Type: Report from Study
  Country: JP (occurrence: JP)
  Receive Date: 20130318
  Receipt Date: 20130412
  Transmission Date: 20140414
  Serious: Yes (Hospitalization)
  Sender: FDA-Public Use
  Company Number: JP-JNJFOC-20130305414

PATIENT
  Age: 60 Year
  Sex: Female
  Weight: 45 kg

DRUGS (4)
  1. INVEGA [Suspect]
     Indication: SCHIZOPHRENIA, RESIDUAL TYPE
     Route: 048
     Dates: start: 20120322, end: 20120328
  2. INVEGA [Suspect]
     Indication: SCHIZOPHRENIA, RESIDUAL TYPE
     Route: 048
     Dates: start: 20111014, end: 20120321
  3. LENDORMIN [Concomitant]
     Indication: SCHIZOPHRENIA, RESIDUAL TYPE
     Route: 048
     Dates: start: 20110915, end: 20120311
  4. ROHYPNOL [Concomitant]
     Indication: INSOMNIA
     Route: 048
     Dates: start: 20120312

REACTIONS (3)
  - Malaise [Recovered/Resolved]
  - Akathisia [Recovering/Resolving]
  - Insomnia [Recovered/Resolved]
